FAERS Safety Report 6175526-3 (Version None)
Quarter: 2009Q2

REPORT INFORMATION
  Report Type: 
  Country: None (occurrence: None)
  Receive Date: 20090429
  Receipt Date: 20090421
  Transmission Date: 20091009
  Serious: Yes (Hospitalization, Other)
  Sender: FDA-Public Use
  Company Number: 2009JP001833

PATIENT
  Age: 31 Year
  Sex: Female

DRUGS (8)
  1. PROTOPIC [Suspect]
     Indication: DERMATITIS ATOPIC
     Dosage: 0.1 %, TOPICAL
     Route: 061
     Dates: start: 20020827, end: 20081208
  2. OXAROL (MAXACALCITOL) OINTMENT [Concomitant]
  3. ANTEBATE (BETAMETHASONE BUTYRATE PROPIONATE) OINTMENT [Concomitant]
  4. PROPETO (WHITE SOFT PARAFFIN) EXTERNAL [Concomitant]
  5. HIRUDOID (HEPARINOID) EXTERNAL [Concomitant]
  6. LOCOID [Concomitant]
  7. SATOSALBE (ZINC OXIDE) EXTERNAL [Concomitant]
  8. DERMOVATE (CLOBETASOL PROPIONATE) OINTMENT [Concomitant]

REACTIONS (1)
  - LYMPHOMA [None]
